FAERS Safety Report 22521293 (Version 4)
Quarter: 2023Q4

REPORT INFORMATION
  Report Type: Spontaneous
  Country: US (occurrence: US)
  Receive Date: 20230605
  Receipt Date: 20231106
  Transmission Date: 20240109
  Serious: No
  Sender: FDA-Public Use
  Company Number: US-PFIZER INC-202300208359

PATIENT
  Age: 88 Year
  Sex: Female
  Weight: 82.993 kg

DRUGS (3)
  1. IBRANCE [Suspect]
     Active Substance: PALBOCICLIB
     Indication: Breast cancer
     Dosage: 125 MG, CYCLIC (DAILY; 21 OUT OF 28 DAYS)
     Dates: start: 20230420, end: 2023
  2. IBRANCE [Suspect]
     Active Substance: PALBOCICLIB
     Dosage: 125 MG, CYCLIC (DAILY; 21 OUT OF 28 DAYS)
     Dates: start: 2023
  3. IBRANCE [Suspect]
     Active Substance: PALBOCICLIB
     Dosage: 125 MG, CYCLIC (ONCE AWEEK 20 DAYS, OFF 7 DAYS)
     Dates: start: 2023

REACTIONS (7)
  - Pruritus [Recovering/Resolving]
  - Skin abrasion [Recovering/Resolving]
  - Fatigue [Not Recovered/Not Resolved]
  - Rash pruritic [Recovering/Resolving]
  - Dizziness exertional [Not Recovered/Not Resolved]
  - Rash [Unknown]
  - Blood pressure decreased [Recovering/Resolving]

NARRATIVE: CASE EVENT DATE: 20230101
